FAERS Safety Report 19725879 (Version 1)
Quarter: 2021Q3

REPORT INFORMATION
  Report Type: Spontaneous
  Country: US (occurrence: US)
  Receive Date: 20210819
  Receipt Date: 20210819
  Transmission Date: 20211014
  Serious: Yes (Other)
  Sender: FDA-Public Use
  Company Number: US-PFIZER INC-202100998717

PATIENT
  Age: 67 Year
  Sex: Male
  Weight: 82.54 kg

DRUGS (1)
  1. XELJANZ [Suspect]
     Active Substance: TOFACITINIB CITRATE
     Indication: PSORIATIC ARTHROPATHY
     Dosage: 10 MG, 2X/DAY (10MG, BLUE PILL, BY MOUTH, ONCE IN THE MORNING, ONCE IN THE EVENING)
     Route: 048

REACTIONS (6)
  - Muscular weakness [Unknown]
  - Joint injury [Unknown]
  - Tendon injury [Unknown]
  - Meniscus injury [Unknown]
  - Pain [Unknown]
  - Myalgia [Unknown]

NARRATIVE: CASE EVENT DATE: 202107
